FAERS Safety Report 8770611 (Version 3)
Quarter: 2012Q4

REPORT INFORMATION
  Report Type: 
  Country: SE (occurrence: SE)
  Receive Date: 20120906
  Receipt Date: 20121023
  Transmission Date: 20130627
  Serious: Yes (Death)
  Sender: FDA-Public Use
  Company Number: SE-ROCHE-1112098

PATIENT
  Age: 87 Year
  Sex: Female

DRUGS (1)
  1. AVASTIN [Suspect]
     Indication: PRODUCT USED FOR UNKNOWN INDICATION
     Dosage: 25 mg/ml
     Route: 050
     Dates: start: 20120625, end: 20120625

REACTIONS (1)
  - Cardiac arrest [Fatal]
